FAERS Safety Report 8988103 (Version 1)
Quarter: 2012Q4

REPORT INFORMATION
  Report Type: 
  Country: GB (occurrence: GB)
  Receive Date: 20121227
  Receipt Date: 20121227
  Transmission Date: 20130627
  Serious: Yes (Other)
  Sender: FDA-Public Use
  Company Number: GB-PFIZER INC-2012319604

PATIENT
  Age: 68 Year
  Sex: Female

DRUGS (5)
  1. LYRICA [Suspect]
     Dosage: unknown
  2. CLOPIDOGREL [Concomitant]
  3. PREDNISOLONE [Concomitant]
     Dosage: 10mg for 5 days, 15mg for 2 days
  4. HUMIRA [Concomitant]
     Dosage: 40 mg, weekly
  5. FENTANYL [Concomitant]

REACTIONS (9)
  - Pharyngeal oedema [Unknown]
  - Swollen tongue [Unknown]
  - Swelling face [Unknown]
  - Hypoaesthesia [Unknown]
  - Constipation [Unknown]
  - Increased appetite [Unknown]
  - Memory impairment [Unknown]
  - Dry mouth [Unknown]
  - Flatulence [Unknown]
